FAERS Safety Report 11896350 (Version 1)
Quarter: 2016Q1

REPORT INFORMATION
  Report Type: Report from Study
  Country: TW (occurrence: TW)
  Receive Date: 20160107
  Receipt Date: 20160107
  Transmission Date: 20160526
  Serious: Yes (Other)
  Sender: FDA-Public Use
  Company Number: TW-MYLANLABS-2016M1000106

PATIENT

DRUGS (5)
  1. SIROLIMUS. [Suspect]
     Active Substance: SIROLIMUS
     Indication: UTERINE LEIOMYOSARCOMA
     Dosage: 2 MG/DAY
     Route: 042
  2. CYCLOPHOSPHAMIDE. [Suspect]
     Active Substance: CYCLOPHOSPHAMIDE
     Indication: UTERINE LEIOMYOSARCOMA
     Dosage: 50MG EVERY OTHER DAY
     Route: 048
  3. ETOPOSIDE. [Suspect]
     Active Substance: ETOPOSIDE
     Indication: UTERINE LEIOMYOSARCOMA
     Dosage: 50MG EVERY OTHER DAY
     Route: 048
  4. GEMCITABINE [Suspect]
     Active Substance: GEMCITABINE\GEMCITABINE HYDROCHLORIDE
     Indication: UTERINE LEIOMYOSARCOMA
     Dosage: 1400MG EVERY 2 WEEKS
     Route: 042
  5. HYDROXYCHLOROQUINE [Suspect]
     Active Substance: HYDROXYCHLOROQUINE
     Indication: UTERINE LEIOMYOSARCOMA
     Dosage: 400 MG/DAY
     Route: 042

REACTIONS (2)
  - Hepatitis [Unknown]
  - Hepatitis B [Unknown]
